FAERS Safety Report 15534671 (Version 1)
Quarter: 2018Q4

REPORT INFORMATION
  Report Type: Spontaneous
  Country: US (occurrence: US)
  Receive Date: 20181022
  Receipt Date: 20181022
  Transmission Date: 20190205
  Serious: No
  Sender: FDA-Public Use
  Company Number: US-B.I. PHARMACEUTICALS,INC./RIDGEFIELD-2018-BI-050648

PATIENT
  Age: 76 Year
  Sex: Female

DRUGS (3)
  1. GILOTRIF [Suspect]
     Active Substance: AFATINIB
     Indication: NON-SMALL CELL LUNG CANCER METASTATIC
     Dosage: ONCE A DAY;  FORM STRENGTH: 40 MG; FORMULATION: TABLET? YES ?ACTION TAKEN DRUG REDUCED
     Route: 048
     Dates: start: 20180924, end: 20181005
  2. GILOTRIF [Suspect]
     Active Substance: AFATINIB
     Dosage: EVERY OTHER DAY;  FORM STRENGTH: 40 MG; FORMULATION: TABLET? YES ?ACTION TAKEN DRUG REDUCED
     Route: 048
  3. ALPRAZOLAM. [Concomitant]
     Active Substance: ALPRAZOLAM
     Indication: PRODUCT USED FOR UNKNOWN INDICATION
     Route: 065

REACTIONS (3)
  - Tenderness [Not Recovered/Not Resolved]
  - Oral mucosal blistering [Not Recovered/Not Resolved]
  - Oral pain [Not Recovered/Not Resolved]

NARRATIVE: CASE EVENT DATE: 20181001
